FAERS Safety Report 4777308-3 (Version None)
Quarter: 2005Q3

REPORT INFORMATION
  Report Type: 
  Country: None (occurrence: None)
  Receive Date: 20050915
  Receipt Date: 20050908
  Transmission Date: 20060218
  Serious: Yes (Hospitalization, Other)
  Sender: FDA-Public Use
  Company Number: 2005051486

PATIENT
  Age: 67 Year
  Sex: Female

DRUGS (2)
  1. NEURONTIN [Suspect]
     Indication: DEPRESSION
     Dosage: (100 MG), ORAL
     Route: 048
  2. AVELOX [Suspect]
     Indication: PNEUMONIA
     Dosage: ORAL
     Route: 048

REACTIONS (10)
  - ABNORMAL BEHAVIOUR [None]
  - ASTHENIA [None]
  - DEPRESSION [None]
  - EMOTIONAL DISORDER [None]
  - INCOHERENT [None]
  - LOBAR PNEUMONIA [None]
  - MENTAL STATUS CHANGES [None]
  - PARTNER STRESS [None]
  - PSYCHOTIC DISORDER [None]
  - SUICIDAL IDEATION [None]
